FAERS Safety Report 13624107 (Version 1)
Quarter: 2017Q2

REPORT INFORMATION
  Report Type: Spontaneous
  Country: US (occurrence: US)
  Receive Date: 20170608
  Receipt Date: 20170608
  Transmission Date: 20170830
  Serious: Yes (Other)
  Sender: FDA-Public Use
  Company Number: US-ZYDUS-015409

PATIENT
  Age: 71 Year
  Sex: Female

DRUGS (11)
  1. VALPROIC ACID. [Suspect]
     Active Substance: VALPROIC ACID
     Indication: PRODUCT USED FOR UNKNOWN INDICATION
     Dosage: 500 MG DURING THE DAY AND 750 MG AT NIGHT
     Route: 065
  2. VALPROIC ACID. [Suspect]
     Active Substance: VALPROIC ACID
     Indication: PRODUCT USED FOR UNKNOWN INDICATION
     Route: 065
     Dates: start: 2011
  3. LEVODOPA [Concomitant]
     Active Substance: LEVODOPA
     Indication: PARKINSONISM
     Route: 065
  4. VALPROIC ACID. [Suspect]
     Active Substance: VALPROIC ACID
     Indication: PRODUCT USED FOR UNKNOWN INDICATION
     Route: 065
  5. CARBIDOPA/LEVODOPA [Concomitant]
     Indication: PARKINSONISM
     Route: 065
     Dates: start: 2012
  6. CARBIDOPA/LEVODOPA [Concomitant]
     Indication: PARKINSONISM
     Route: 065
     Dates: start: 2010
  7. CLONAZEPAM. [Concomitant]
     Active Substance: CLONAZEPAM
     Indication: PRODUCT USED FOR UNKNOWN INDICATION
     Dosage: 0.25 MG DURING THE DAY AND 0.5 MG AT BEDTIME
     Route: 065
  8. CARBIDOPA/LEVODOPA [Concomitant]
     Indication: PARKINSONISM
     Route: 065
  9. CARBIDOPA/LEVODOPA [Concomitant]
     Indication: PARKINSONISM
     Route: 065
  10. VENLAFAXINE EXTENDED RELEASE [Concomitant]
     Active Substance: VENLAFAXINE HYDROCHLORIDE
     Indication: PRODUCT USED FOR UNKNOWN INDICATION
     Route: 065
  11. CARBIDOPA/LEVODOPA [Concomitant]
     Indication: PARKINSONISM
     Route: 065
     Dates: start: 2011

REACTIONS (19)
  - Cerebral atrophy [Recovered/Resolved]
  - Bradykinesia [Recovered/Resolved]
  - Cogwheel rigidity [Recovered/Resolved]
  - Fall [Recovered/Resolved]
  - Reduced facial expression [Recovered/Resolved]
  - Somnolence [Recovered/Resolved]
  - Memory impairment [Recovered/Resolved]
  - Head titubation [Recovered/Resolved]
  - Dementia [Recovered/Resolved]
  - Posture abnormal [Recovered/Resolved]
  - Disturbance in attention [Recovered/Resolved]
  - Muscle rigidity [Recovered/Resolved]
  - Cognitive disorder [Recovered/Resolved]
  - Dysphoria [Recovered/Resolved]
  - Parkinsonism [Recovered/Resolved]
  - Insomnia [Recovered/Resolved]
  - Hypokinesia [Recovered/Resolved]
  - Tremor [Recovered/Resolved]
  - Fatigue [Recovered/Resolved]

NARRATIVE: CASE EVENT DATE: 2010
